FAERS Safety Report 4979818-2 (Version None)
Quarter: 2006Q2

REPORT INFORMATION
  Report Type: 
  Country: None (occurrence: None)
  Receive Date: 20060421
  Receipt Date: 20060413
  Transmission Date: 20061013
  Serious: Yes (Disabling)
  Sender: FDA-Public Use
  Company Number: JP-MERCK-0604USA02808

PATIENT
  Age: 39 Year
  Sex: Female

DRUGS (7)
  1. ZOCOR [Suspect]
     Route: 048
     Dates: start: 20040528
  2. LUVOX [Concomitant]
     Route: 048
  3. GRANDAXIN [Concomitant]
     Route: 048
  4. ANAFRANIL [Concomitant]
     Route: 048
  5. [THERAPY UNSPECIFIED] [Concomitant]
     Route: 048
     Dates: start: 20040528
  6. TOKAKU-JOKI-TO [Concomitant]
     Route: 048
     Dates: start: 20040528
  7. SILECE [Concomitant]
     Route: 048

REACTIONS (3)
  - ABDOMINAL PAIN UPPER [None]
  - FAECES DISCOLOURED [None]
  - GENITAL HAEMORRHAGE [None]
